FAERS Safety Report 23956501 (Version 1)
Quarter: 2024Q2

REPORT INFORMATION
  Report Type: Spontaneous
  Country: US (occurrence: US)
  Receive Date: 20240610
  Receipt Date: 20240610
  Transmission Date: 20240716
  Serious: No
  Sender: FDA-Public Use
  Company Number: US-STI Pharma LLC-2157945

PATIENT
  Age: 86 Year
  Sex: Female

DRUGS (4)
  1. ETHAMBUTOL HYDROCHLORIDE [Suspect]
     Active Substance: ETHAMBUTOL HYDROCHLORIDE
  2. AMIKACIN [Concomitant]
     Active Substance: AMIKACIN
  3. RIFABUTIN [Concomitant]
     Active Substance: RIFABUTIN
  4. AZITHROMYCIN [Concomitant]
     Active Substance: AZITHROMYCIN

REACTIONS (4)
  - Mycobacterium avium complex infection [Unknown]
  - Cough [Unknown]
  - Dyspnoea [Unknown]
  - Sputum abnormal [Unknown]
